FAERS Safety Report 7440866-4 (Version None)
Quarter: 2011Q2

REPORT INFORMATION
  Report Type: 
  Country: None (occurrence: None)
  Receive Date: 20110427
  Receipt Date: 20091226
  Transmission Date: 20111010
  Serious: Yes (Death, Other)
  Sender: FDA-Public Use
  Company Number: US-BAYER-200943565NA

PATIENT
  Age: 16 Day
  Sex: Male
  Weight: 3.35 kg

DRUGS (13)
  1. ANCEF [Concomitant]
     Dosage: UNK
     Dates: start: 20070423
  2. ANCEF [Concomitant]
     Dosage: 100 MG, UNK
     Route: 042
     Dates: start: 20070424
  3. LIDOCAINE [Concomitant]
     Dosage: UNK
     Route: 042
     Dates: start: 20070424
  4. LASIX [Concomitant]
     Indication: FLUID RETENTION
     Dosage: UNK
     Route: 042
     Dates: start: 20070424
  5. INSULIN [INSULIN] [Concomitant]
     Dosage: 20 U, UNK
     Route: 042
     Dates: start: 20070424
  6. AMIODARONE [Concomitant]
     Dosage: UNK
     Route: 042
     Dates: start: 20070424
  7. TRASYLOL [Suspect]
     Indication: VENTRICULAR SEPTAL DEFECT REPAIR
  8. METHYLPREDNISOLONE [Concomitant]
     Dosage: 87 MG, UNK
     Route: 042
     Dates: start: 20070424
  9. MILRINONE [Concomitant]
     Dosage: UNK
     Route: 042
     Dates: start: 20070424
  10. DOPAMINE HCL [Concomitant]
     Dosage: UNK
     Route: 042
     Dates: start: 20070424
  11. TRASYLOL [Suspect]
     Indication: CARDIAC OPERATION
     Dosage: 13.4ML/30 MINUTES, MAINTENANCE RATE OF 67ML/HR, 83MG
     Route: 042
     Dates: start: 20070424, end: 20070424
  12. HEPARIN [Concomitant]
     Dosage: 2000 U, UNK
     Route: 042
     Dates: start: 20070424
  13. EPINEPHRINE [Concomitant]
     Dosage: UNK
     Route: 042
     Dates: start: 20070424

REACTIONS (7)
  - RENAL FAILURE ACUTE [None]
  - RENAL INJURY [None]
  - UNEVALUABLE EVENT [None]
  - PAIN [None]
  - INJURY [None]
  - RENAL FAILURE [None]
  - DEATH [None]
